FAERS Safety Report 6021848-6 (Version None)
Quarter: 2008Q4

REPORT INFORMATION
  Report Type: 
  Country: None (occurrence: None)
  Receive Date: 20081229
  Receipt Date: 20081216
  Transmission Date: 20090506
  Serious: Yes (Other)
  Sender: FDA-Public Use
  Company Number: US-ROCHE-597940

PATIENT
  Sex: Female

DRUGS (3)
  1. PEG-INTERFERON A-2A (RO 25-8310) [Suspect]
     Indication: HEPATITIS C
     Route: 065
     Dates: start: 20080923
  2. RIBAVIRIN [Suspect]
     Indication: HEPATITIS C
     Route: 065
     Dates: start: 20080923
  3. LEXAPRO [Concomitant]

REACTIONS (7)
  - DECREASED APPETITE [None]
  - DYSGEUSIA [None]
  - GLOSSITIS [None]
  - HYPOTHYROIDISM [None]
  - LUNG INFECTION [None]
  - MOOD SWINGS [None]
  - OSTEOPOROSIS [None]
